FAERS Safety Report 6275968-1 (Version None)
Quarter: 2009Q3

REPORT INFORMATION
  Report Type: 
  Country: None (occurrence: None)
  Receive Date: 20090720
  Receipt Date: 20090702
  Transmission Date: 20100115
  Serious: Yes (Death)
  Sender: FDA-Public Use
  Company Number: 2008AL012451

PATIENT
  Age: 81 Year
  Sex: Female

DRUGS (55)
  1. DIGOXIN [Suspect]
     Dosage: 0.125MG, DAILY, PO
     Route: 048
     Dates: start: 20000101, end: 20071231
  2. PROPULSID [Concomitant]
  3. PAXIL [Concomitant]
  4. PREMARIN [Concomitant]
  5. CIMETIDINE [Concomitant]
  6. CLORAZ [Concomitant]
  7. LACTULOSE [Concomitant]
  8. ANUCORT [Concomitant]
  9. VIOXX [Concomitant]
  10. MIRALAX [Concomitant]
  11. HYOSCYAMINE [Concomitant]
  12. DITROPAN [Concomitant]
  13. MOBIC [Concomitant]
  14. CELEXA [Concomitant]
  15. GUAFIENEX [Concomitant]
  16. CELEBREX [Concomitant]
  17. PREVACID [Concomitant]
  18. BIAXIN [Concomitant]
  19. MTRONIDAZOL [Concomitant]
  20. FUROSEMIDE [Concomitant]
  21. PROPO-N/APAP [Concomitant]
  22. PRILOSEC [Concomitant]
  23. ROXICET [Concomitant]
  24. DICYCLOMINE [Concomitant]
  25. POTASSIUM CHLORIDE [Concomitant]
  26. LOTRISONE [Concomitant]
  27. MACROID [Concomitant]
  28. TIAZAC [Concomitant]
  29. NITROFUR [Concomitant]
  30. TOPROL-XL [Concomitant]
  31. LEXAPRO [Concomitant]
  32. DETROL [Concomitant]
  33. CYCLOBENZAPR [Concomitant]
  34. ACTONEL [Concomitant]
  35. ZYPREXA [Concomitant]
  36. URIMAR [Concomitant]
  37. METHOCARBAM [Concomitant]
  38. REMERON [Concomitant]
  39. EFFEXOR [Concomitant]
  40. ESTRADIOL [Concomitant]
  41. NEURONTIN [Concomitant]
  42. ACETAMINOPHEN AND HYDROCODONE BITARTRATE [Concomitant]
  43. CYMBALTA [Concomitant]
  44. ROZEREM [Concomitant]
  45. NAPROXEN [Concomitant]
  46. CARDIZEM [Concomitant]
  47. DILTIAZER [Concomitant]
  48. BENICAR [Concomitant]
  49. PROTONIX [Concomitant]
  50. MEGESTROL ACETATE [Concomitant]
  51. HYDRO-TUSSIN [Concomitant]
  52. ZOLPIDEM [Concomitant]
  53. ARICEPT [Concomitant]
  54. LORAZEPAM [Concomitant]
  55. TRAMADOLL [Concomitant]

REACTIONS (10)
  - ANAEMIA [None]
  - ANXIETY [None]
  - CARDIAC DISORDER [None]
  - CARDIAC FAILURE CONGESTIVE [None]
  - FEAR [None]
  - HYPERTENSION [None]
  - MULTIPLE INJURIES [None]
  - RENAL FAILURE ACUTE [None]
  - RESPIRATORY FAILURE [None]
  - SOCIAL PROBLEM [None]
